FAERS Safety Report 18204759 (Version 1)
Quarter: 2020Q3

REPORT INFORMATION
  Report Type: Report from Study
  Country: None (occurrence: CA)
  Receive Date: 20200828
  Receipt Date: 20200828
  Transmission Date: 20201103
  Serious: Yes (Hospitalization)
  Sender: FDA-Public Use
  Company Number: CA-ABBVIE-20K-028-3538936-00

PATIENT
  Sex: Male

DRUGS (1)
  1. HUMIRA [Suspect]
     Active Substance: ADALIMUMAB
     Indication: PSORIATIC ARTHROPATHY
     Route: 058
     Dates: start: 20180427

REACTIONS (5)
  - Mobility decreased [Unknown]
  - Arthritis [Unknown]
  - Coronary artery occlusion [Unknown]
  - Humidity intolerance [Unknown]
  - Psoriasis [Recovered/Resolved]
